FAERS Safety Report 13572594 (Version 2)
Quarter: 2017Q3

REPORT INFORMATION
  Report Type: Spontaneous
  Country: US (occurrence: US)
  Receive Date: 20170523
  Receipt Date: 20170725
  Transmission Date: 20171127
  Serious: Yes (Hospitalization)
  Sender: FDA-Public Use
  Company Number: US-JNJFOC-20170511805

PATIENT
  Age: 81 Year
  Sex: Male

DRUGS (17)
  1. WARFARIN [Concomitant]
     Active Substance: WARFARIN
  2. FERROUS SULFATE. [Concomitant]
     Active Substance: FERROUS SULFATE
  3. BUDESONIDE. [Concomitant]
     Active Substance: BUDESONIDE
  4. ASPIRIN. [Concomitant]
     Active Substance: ASPIRIN
  5. CEFALEXIN [Concomitant]
     Active Substance: CEPHALEXIN
  6. CARVEDILOL. [Concomitant]
     Active Substance: CARVEDILOL
  7. LISINOPRIL. [Concomitant]
     Active Substance: LISINOPRIL
  8. FUROSEMIDE. [Concomitant]
     Active Substance: FUROSEMIDE
  9. RITUXAN [Concomitant]
     Active Substance: RITUXIMAB
  10. MULTIVITAMINS [Concomitant]
     Active Substance: VITAMINS
  11. SIMVASTATIN. [Concomitant]
     Active Substance: SIMVASTATIN
  12. ALLOPURINOL. [Concomitant]
     Active Substance: ALLOPURINOL
  13. TAMSULOSIN [Concomitant]
     Active Substance: TAMSULOSIN
  14. FINASTERIDE. [Concomitant]
     Active Substance: FINASTERIDE
  15. IRON [Concomitant]
     Active Substance: IRON
  16. IMBRUVICA [Suspect]
     Active Substance: IBRUTINIB
     Indication: CHRONIC LYMPHOCYTIC LEUKAEMIA
     Route: 048
     Dates: start: 20170329, end: 20170425
  17. BROVANA [Concomitant]
     Active Substance: ARFORMOTEROL TARTRATE

REACTIONS (5)
  - Neck pain [Recovered/Resolved]
  - Decreased appetite [Recovering/Resolving]
  - Dyspnoea [Recovered/Resolved]
  - Musculoskeletal pain [Recovered/Resolved]
  - Diarrhoea [Recovering/Resolving]

NARRATIVE: CASE EVENT DATE: 201704
